FAERS Safety Report 5026291-4 (Version None)
Quarter: 2006Q2

REPORT INFORMATION
  Report Type: 
  Country: None (occurrence: None)
  Receive Date: 20060426
  Receipt Date: 20060123
  Transmission Date: 20061013
  Serious: Yes (Other)
  Sender: FDA-Public Use
  Company Number: 2006012138

PATIENT
  Sex: Female
  Weight: 58.9676 kg

DRUGS (12)
  1. LYRICA [Suspect]
     Indication: PAIN
     Dosage: 75 MG (75 MG,1 IN 1 D)
     Dates: start: 20051101, end: 20050101
  2. TRILEPTAL [Suspect]
     Indication: PAIN
     Dosage: 900 MG (900 MG,1 IN 1 D)
     Dates: start: 20051201
  3. LEXAPRO [Concomitant]
  4. LISINOPRIL [Concomitant]
  5. CELEBREX [Concomitant]
  6. PRAVACHOL [Concomitant]
  7. PRILOSEC [Concomitant]
  8. FLOMAX [Concomitant]
  9. TEMAZEPAM [Concomitant]
  10. TRAMADOL HCL [Concomitant]
  11. NASONEX [Concomitant]
  12. LACTULOSE [Concomitant]

REACTIONS (6)
  - ASTHENIA [None]
  - BLOOD SODIUM DECREASED [None]
  - DIFFICULTY IN WALKING [None]
  - FALL [None]
  - JOINT SWELLING [None]
  - SEDATION [None]
